FAERS Safety Report 10456448 (Version 1)
Quarter: 2014Q3

REPORT INFORMATION
  Report Type: Spontaneous
  Country: GB (occurrence: None)
  Receive Date: 20140912
  Receipt Date: 20140912
  Transmission Date: 20150326
  Serious: Yes (Hospitalization)
  Sender: FDA-Public Use
  Company Number: FK201403635

PATIENT
  Age: 33 Year
  Sex: Female

DRUGS (8)
  1. DOCETAXEL (MANUFACTURER UNKNOWN) (DOCETAXEL) (DOCETAXEL) [Suspect]
     Active Substance: DOCETAXEL
     Indication: PRODUCT USED FOR UNKNOWN INDICATION
     Dosage: 140 MG, 1 IN 3 WK
     Dates: start: 20130322, end: 20130322
  2. TRASTUZUMAB [Concomitant]
     Active Substance: TRASTUZUMAB
  3. MOVICOL (POLYETHYL. GLYC. W/POTAS. CHLOR./SOD. BICARB.) [Concomitant]
  4. CYCLIZINE (CYCLIZINE) [Concomitant]
  5. PROSTAP (LEUPRORELIN ACETATE) [Concomitant]
  6. CARBOPLATIN (MANUFACTURER UNKNOWN) (CARBOPLATIN) (CARBOPLATIN) [Suspect]
     Active Substance: CARBOPLATIN
     Indication: PRODUCT USED FOR UNKNOWN INDICATION
     Dosage: 980 MG, 1 IN 3 WK
     Dates: start: 20130322, end: 20130322
  7. METOCLOPRAMIDE (METOCLOPRAMIDE) [Concomitant]
     Active Substance: METOCLOPRAMIDE
  8. APREPITANT (APREPITANT) [Concomitant]

REACTIONS (1)
  - Neutropenic sepsis [None]

NARRATIVE: CASE EVENT DATE: 20130621
